FAERS Safety Report 9089541 (Version 2)
Quarter: 2013Q1

REPORT INFORMATION
  Report Type: Spontaneous
  Country: FR (occurrence: FR)
  Receive Date: 20130131
  Receipt Date: 20130226
  Transmission Date: 20140127
  Serious: Yes (Hospitalization, Other)
  Sender: FDA-Public Use
  Company Number: FR-PFIZER INC-2013029120

PATIENT
  Age: 60 Year
  Sex: Female

DRUGS (7)
  1. TAHOR [Suspect]
     Dosage: 40 MG, 1X/DAY
     Route: 048
  2. MONO-TILDIEM [Suspect]
     Dosage: 240 MG, 1X/DAY
     Route: 048
  3. DUPHASTON [Suspect]
     Dosage: UNK
     Route: 048
     Dates: start: 201209, end: 20121119
  4. ESTREVA [Suspect]
     Dosage: 1 MG, 1X/DAY
     Route: 003
     Dates: start: 201209, end: 20121119
  5. EZETROL [Suspect]
     Dosage: 1 DF, 1X/DAY
     Route: 048
  6. KARDEGIC [Suspect]
     Dosage: 75 MG, 1X/DAY
     Route: 048
  7. NATISPRAY [Concomitant]
     Dosage: UNK, AS NEEDED

REACTIONS (4)
  - Optic neuritis [Not Recovered/Not Resolved]
  - Paraneoplastic syndrome [Unknown]
  - Cerebral ischaemia [Unknown]
  - Positron emission tomogram abnormal [Unknown]
